FAERS Safety Report 7759562-9 (Version None)
Quarter: 2011Q3

REPORT INFORMATION
  Report Type: 
  Country: None (occurrence: None)
  Receive Date: 20110919
  Receipt Date: 20110908
  Transmission Date: 20111222
  Serious: Yes (Hospitalization, Other)
  Sender: FDA-Public Use
  Company Number: US-BAXTER-2011BH027740

PATIENT
  Sex: Male

DRUGS (5)
  1. DIANEAL [Suspect]
     Route: 033
     Dates: start: 20110615, end: 20110818
  2. DIANEAL [Suspect]
     Route: 033
     Dates: start: 20110615, end: 20110818
  3. DIANEAL [Suspect]
     Indication: PERITONEAL DIALYSIS
     Route: 033
  4. DIANEAL [Suspect]
     Indication: PERITONEAL DIALYSIS
     Route: 033
  5. FRESENIUS DIALYSATE UNKNOWN [Suspect]
     Indication: PERITONEAL DIALYSIS
     Route: 065
     Dates: end: 20110601

REACTIONS (4)
  - BLOOD ALBUMIN DECREASED [None]
  - INFECTIOUS PERITONITIS [None]
  - ASTHENIA [None]
  - FLUID OVERLOAD [None]
